FAERS Safety Report 18695380 (Version 2)
Quarter: 2021Q1

REPORT INFORMATION
  Report Type: Spontaneous
  Country: US (occurrence: US)
  Receive Date: 20210104
  Receipt Date: 20210130
  Transmission Date: 20210419
  Serious: No
  Sender: FDA-Public Use
  Company Number: US-CELGENEUS-USA-20201208912

PATIENT
  Sex: Male

DRUGS (2)
  1. POMALYST [Suspect]
     Active Substance: POMALIDOMIDE
     Indication: PLASMA CELL MYELOMA
     Dosage: 4 MILLIGRAM
     Route: 048
     Dates: start: 202009
  2. POMALYST [Suspect]
     Active Substance: POMALIDOMIDE
     Indication: PANCYTOPENIA
     Dosage: 4 MILLIGRAM
     Route: 048
     Dates: start: 20170725

REACTIONS (8)
  - Renal disorder [Unknown]
  - Muscle spasms [Unknown]
  - Pain in extremity [Unknown]
  - Rash [Unknown]
  - Pyrexia [Unknown]
  - Dyspnoea [Unknown]
  - Fatigue [Unknown]
  - Arthralgia [Unknown]
